FAERS Safety Report 12270640 (Version 2)
Quarter: 2016Q2

REPORT INFORMATION
  Report Type: Spontaneous
  Country: US (occurrence: US)
  Receive Date: 20160415
  Receipt Date: 20160421
  Transmission Date: 20160815
  Serious: No
  Sender: FDA-Public Use
  Company Number: US-PFIZER INC-2016213676

PATIENT
  Age: 27 Year
  Sex: Male

DRUGS (2)
  1. BOSULIF [Suspect]
     Active Substance: BOSUTINIB MONOHYDRATE
     Indication: LEUKAEMIA
     Dosage: 1600 MG, DAILY (TAKE 4 (400 MG) CAPSULE/TAB DAILY)
  2. CIPROFLOXACIN. [Concomitant]
     Active Substance: CIPROFLOXACIN
     Dosage: UNK

REACTIONS (2)
  - Prescribed overdose [Unknown]
  - Fatigue [Unknown]
